FAERS Safety Report 15133244 (Version 1)
Quarter: 2018Q3

REPORT INFORMATION
  Report Type: Spontaneous
  Country: ES (occurrence: ES)
  Receive Date: 20180712
  Receipt Date: 20180712
  Transmission Date: 20181010
  Serious: Yes (Other)
  Sender: FDA-Public Use
  Company Number: ES-SUN PHARMACEUTICAL INDUSTRIES LTD-2018RR-178094

PATIENT
  Age: 87 Year
  Sex: Female

DRUGS (5)
  1. IRBESARTAN. [Interacting]
     Active Substance: IRBESARTAN
     Indication: PRODUCT USED FOR UNKNOWN INDICATION
     Dosage: 1?0?0
     Route: 048
     Dates: start: 20120101
  2. ORFIDAL 1 MG COMPRIMIDOS, 25 [Concomitant]
     Indication: PRODUCT USED FOR UNKNOWN INDICATION
     Dosage: 1 CP NOCHE ()
     Route: 048
     Dates: start: 20170314, end: 20171128
  3. IRBESARTAN/HYDROCHLOROTHIAZIDE [Suspect]
     Active Substance: HYDROCHLOROTHIAZIDE\IRBESARTAN
     Indication: PRODUCT USED FOR UNKNOWN INDICATION
     Dosage: 1?0?0
     Route: 048
     Dates: start: 20170314, end: 20171128
  4. CONDROSAN 400 GRANULADO PARA SOLUCION ORAL , 60 SOBRES [Concomitant]
     Indication: PRODUCT USED FOR UNKNOWN INDICATION
     Dosage: 1?0?0 ()
     Route: 048
     Dates: start: 20170314
  5. ZALDIAR (7327A) [Concomitant]
     Indication: PRODUCT USED FOR UNKNOWN INDICATION
     Dosage: 1?1?1 ()
     Route: 048
     Dates: start: 20170314

REACTIONS (2)
  - Hyperkalaemia [Recovered/Resolved]
  - Acute kidney injury [Recovered/Resolved]

NARRATIVE: CASE EVENT DATE: 20171128
